FAERS Safety Report 20228618 (Version 1)
Quarter: 2021Q4

REPORT INFORMATION
  Report Type: Spontaneous
  Country: US (occurrence: US)
  Receive Date: 20211225
  Receipt Date: 20211225
  Transmission Date: 20220303
  Serious: No
  Sender: FDA-Public Use
  Company Number: US-SA-SAC20211221000064

PATIENT
  Age: 66 Year
  Sex: Male

DRUGS (8)
  1. AUBAGIO [Suspect]
     Active Substance: TERIFLUNOMIDE
     Indication: Adverse drug reaction
     Dosage: 14 MG, QD
     Route: 048
     Dates: start: 20210122
  2. BACLOFEN [Concomitant]
     Active Substance: BACLOFEN
  3. IBUPROFEN [Concomitant]
     Active Substance: IBUPROFEN
     Dosage: 800 MG
  4. METOPROLOL [Concomitant]
     Active Substance: METOPROLOL
     Dosage: 50 MG
  5. MUPIROCIN [Concomitant]
     Active Substance: MUPIROCIN
  6. OXYBUTYNIN [Concomitant]
     Active Substance: OXYBUTYNIN
     Dosage: 15 MG
  7. SIMVASTATIN [Concomitant]
     Active Substance: SIMVASTATIN
     Dosage: 20 MG
  8. TYSABRI [Concomitant]
     Active Substance: NATALIZUMAB
     Dosage: 300MG

REACTIONS (1)
  - Product dose omission issue [Unknown]
